FAERS Safety Report 25743890 (Version 1)
Quarter: 2025Q3

REPORT INFORMATION
  Report Type: Report from Study
  Country: US (occurrence: US)
  Receive Date: 20250831
  Receipt Date: 20250831
  Transmission Date: 20251021
  Serious: Yes (Other)
  Sender: ABBVIE
  Company Number: US-ABBVIE-6435347

PATIENT
  Sex: Female

DRUGS (1)
  1. RINVOQ [Suspect]
     Active Substance: UPADACITINIB
     Indication: Rheumatoid arthritis
     Route: 048
     Dates: start: 202305

REACTIONS (8)
  - Intestinal anastomosis [Not Recovered/Not Resolved]
  - Vitamin B12 increased [Not Recovered/Not Resolved]
  - Mucosal ulceration [Unknown]
  - Intestinal villi atrophy [Unknown]
  - Cryptitis [Unknown]
  - Crohn^s disease [Unknown]
  - Abscess intestinal [Unknown]
  - Pain [Unknown]
